FAERS Safety Report 8830643 (Version 1)
Quarter: 2012Q4

REPORT INFORMATION
  Report Type: 
  Country: US (occurrence: US)
  Receive Date: 20121009
  Receipt Date: 20121009
  Transmission Date: 20130627
  Serious: Yes (Congenital Anomaly)
  Sender: FDA-Public Use
  Company Number: US-SHIRE-ALL1-2012-04596

PATIENT

DRUGS (3)
  1. CARBAMAZEPINE [Suspect]
     Indication: PRODUCT USED FOR UNKNOWN INDICATION
     Dosage: 1000 mg, Unknown
     Route: 064
  2. LAMOTRIGINE [Suspect]
     Indication: PRODUCT USED FOR UNKNOWN INDICATION
     Dosage: 50 mg, Unknown (at LMP)
     Route: 064
  3. LAMOTRIGINE [Suspect]
     Dosage: UNK, Unknown (0mg at week 15)
     Route: 064

REACTIONS (5)
  - Oesophageal atresia [Unknown]
  - Renal aplasia [Unknown]
  - Right aortic arch [Unknown]
  - Exposure during pregnancy [Unknown]
  - Maternal drugs affecting foetus [None]
